FAERS Safety Report 7029644-8 (Version None)
Quarter: 2010Q4

REPORT INFORMATION
  Report Type: 
  Country: None (occurrence: None)
  Receive Date: 20101001
  Receipt Date: 20100917
  Transmission Date: 20110411
  Serious: Yes (Life-Threatening)
  Sender: FDA-Public Use
  Company Number: ALD1-JP-2010-0048

PATIENT
  Age: 73 Year
  Sex: Female

DRUGS (10)
  1. ALDOMET [Suspect]
     Indication: HYPERTENSION
     Dosage: 750 MG PER ORAL
     Route: 048
     Dates: start: 20100727, end: 20100810
  2. ZYLORIC [Concomitant]
  3. KREMEZIN (CHARCOAL, ACTIVATED) (CHARCOAL, ACTIVATED) [Concomitant]
  4. JUVELA N (TOCOPHERYL NICOTINATE) (TOCOPHERYL NICOTINATE) [Concomitant]
  5. CARDENALIN (DOXAZOSIN MESILATE) (DOXAZOSIN MESILATE) [Concomitant]
  6. PARIET (RABEPRAZOLE SODIUM) (RABEPRAZOLE SODIUM) [Concomitant]
  7. MUCOSTA (REBAMIPIDE) (REBMIPIDE) [Concomitant]
  8. CONIEL (BENDIPINE HYDROCHLORIDE) (BENIDIPINE HYDROCHLORIDE) [Concomitant]
  9. BLOPRESS (CANDESARTAN CILEXETIL) (CANDESARTAN CILEXETIL) [Concomitant]
  10. LASIX [Concomitant]

REACTIONS (7)
  - ALTERED STATE OF CONSCIOUSNESS [None]
  - CONDITION AGGRAVATED [None]
  - HAEMODIALYSIS [None]
  - INFECTION [None]
  - PANCYTOPENIA [None]
  - PYREXIA [None]
  - RENAL FAILURE CHRONIC [None]
